FAERS Safety Report 16966890 (Version 1)
Quarter: 2019Q4

REPORT INFORMATION
  Report Type: Spontaneous
  Country: US (occurrence: US)
  Receive Date: 20191028
  Receipt Date: 20191028
  Transmission Date: 20200122
  Serious: No
  Sender: FDA-Public Use
  Company Number: US-SA-2019SA296682

PATIENT
  Age: 61 Year
  Sex: Male

DRUGS (3)
  1. PRALUENT [Suspect]
     Active Substance: ALIROCUMAB
     Indication: HYPERLIPIDAEMIA
     Dosage: 75 MG, QOW
     Route: 058
     Dates: start: 20180827, end: 20190815
  2. AZITHROMYCIN ANHYDROUS. [Interacting]
     Active Substance: AZITHROMYCIN ANHYDROUS
     Indication: INFLUENZA
     Dosage: UNK
     Dates: start: 20191001, end: 20191004
  3. REPATHA [Interacting]
     Active Substance: EVOLOCUMAB
     Dosage: UNK
     Dates: start: 2019

REACTIONS (3)
  - Urticaria [Not Recovered/Not Resolved]
  - Drug interaction [Unknown]
  - Influenza [Unknown]

NARRATIVE: CASE EVENT DATE: 2019
